FAERS Safety Report 8408728 (Version 4)
Quarter: 2013Q1

REPORT INFORMATION
  Report Type: Report from Study
  Country: AU (occurrence: AU)
  Receive Date: 20120216
  Receipt Date: 20130110
  Transmission Date: 20140127
  Serious: Yes (Other)
  Sender: FDA-Public Use
  Company Number: AU-AMGEN-AUSCT2012008902

PATIENT
  Age: 39 Year
  Sex: Female
  Weight: 65 kg

DRUGS (18)
  1. DENOSUMAB [Suspect]
     Indication: BREAST CANCER
     Dosage: UNK
     Route: 058
     Dates: start: 20111024
  2. 5-FLUOROURACIL [Concomitant]
     Indication: BREAST CANCER
     Dosage: UNK
     Dates: start: 20110912, end: 20111114
  3. EPIRUBICIN [Concomitant]
     Indication: BREAST CANCER
     Dosage: UNK
     Dates: start: 20110912, end: 20111114
  4. CYCLOPHOSPHAMIDE [Concomitant]
     Indication: BREAST CANCER
     Dosage: UNK
     Dates: start: 20110912, end: 20111114
  5. PACLITAXEL [Concomitant]
     Indication: BREAST CANCER
     Dosage: 170 MG, UNK
     Route: 042
     Dates: start: 20111205
  6. METOCLOPRAMIDE [Concomitant]
     Dosage: 10 MG, UNK
     Route: 048
     Dates: start: 20110912
  7. SYMBICORT TU [Concomitant]
     Dosage: 200 IU, UNK
     Route: 055
     Dates: start: 19900615
  8. TEMAZEPAM [Concomitant]
     Dosage: 10 MG, UNK
     Route: 048
     Dates: start: 20110905
  9. APREPITANT [Concomitant]
     Dosage: 80 MG, UNK
     Route: 048
     Dates: start: 20110912, end: 20111115
  10. TROPISETRON [Concomitant]
     Dosage: 5 MG, UNK
     Route: 042
     Dates: start: 20110912, end: 20111114
  11. ONDANSETRON [Concomitant]
     Dosage: 4 MG, UNK
     Route: 048
     Dates: start: 20110913
  12. RANITIDINE [Concomitant]
     Dosage: 50 MG, UNK
     Route: 042
     Dates: start: 20111205
  13. LORATADINE [Concomitant]
     Dosage: 10 MG, UNK
     Route: 048
     Dates: start: 20111219
  14. PANADOL [Concomitant]
     Dosage: 1 G, UNK
     Route: 048
     Dates: start: 20120116, end: 20120723
  15. VITAMIN D [Concomitant]
     Dosage: 2000 IU, UNK
     Route: 048
     Dates: start: 20070615
  16. BRICANYL [Concomitant]
     Dosage: 0.5 MG, UNK
     Route: 055
     Dates: start: 19900615
  17. DEXAMETHASONE [Concomitant]
     Dosage: 8 MG, UNK
     Route: 042
     Dates: start: 20110912
  18. CALTRATE [Concomitant]
     Dosage: 600 MG, UNK
     Route: 048
     Dates: start: 20111024

REACTIONS (1)
  - Pneumonitis [Recovered/Resolved]
